FAERS Safety Report 9099322 (Version 1)
Quarter: 2013Q1

REPORT INFORMATION
  Report Type: Spontaneous
  Country: US (occurrence: US)
  Receive Date: 20130214
  Receipt Date: 20130214
  Transmission Date: 20140127
  Serious: Yes (Other)
  Sender: FDA-Public Use
  Company Number: US-BAYER-2013-017181

PATIENT
  Age: 51 Year
  Sex: Male

DRUGS (2)
  1. ALEVE CAPLET/TABLET,MIDOL EXTENDED RELIEF CAPLET [Suspect]
  2. OXYCONTIN [Concomitant]

REACTIONS (6)
  - Blood pressure decreased [None]
  - Hypersensitivity [None]
  - Urticaria [None]
  - Pruritus [None]
  - Hyperhidrosis [None]
  - Diarrhoea [None]
